FAERS Safety Report 7556444-2 (Version None)
Quarter: 2011Q2

REPORT INFORMATION
  Report Type: 
  Country: None (occurrence: None)
  Receive Date: 20110620
  Receipt Date: 20110612
  Transmission Date: 20111010
  Serious: Yes (Hospitalization)
  Sender: FDA-Public Use
  Company Number: DE-ASTELLAS-2011EU003730

PATIENT
  Age: 64 Year
  Sex: Male
  Weight: 90 kg

DRUGS (3)
  1. TACROLIMUS [Suspect]
     Indication: LIVER TRANSPLANT
     Dosage: UNK
     Route: 065
  2. CELLCEPT [Suspect]
     Indication: LIVER TRANSPLANT
     Dosage: 1000 MG, BID
     Route: 042
     Dates: start: 20110606
  3. PROGRAF [Suspect]
     Indication: LIVER TRANSPLANT
     Dosage: 0.5 DF, UID/QD
     Route: 042
     Dates: start: 20110606

REACTIONS (1)
  - POST PROCEDURAL BILE LEAK [None]
